FAERS Safety Report 6183089-1 (Version None)
Quarter: 2009Q2

REPORT INFORMATION
  Report Type: 
  Country: None (occurrence: None)
  Receive Date: 20090507
  Receipt Date: 20090429
  Transmission Date: 20091009
  Serious: No
  Sender: FDA-Public Use
  Company Number: JP-ASTRAZENECA-2009AP01753

PATIENT
  Age: 75 Year
  Sex: Male
  Weight: 74 kg

DRUGS (9)
  1. ZOLADEX [Suspect]
     Indication: PROSTATE CANCER
     Route: 058
     Dates: start: 20080624, end: 20080821
  2. ALOSITOL [Concomitant]
     Indication: HYPERURICAEMIA
     Route: 048
     Dates: start: 20040901, end: 20081121
  3. EPADEL S [Concomitant]
     Indication: HYPERLIPIDAEMIA
     Route: 048
     Dates: start: 20060801, end: 20081121
  4. JUVELA N [Concomitant]
     Indication: HYPERLIPIDAEMIA
     Route: 048
     Dates: start: 20070401, end: 20081121
  5. NEUQUINON [Concomitant]
     Indication: CARDIAC FAILURE CONGESTIVE
     Dosage: DOSE UNKNOWN
     Route: 048
     Dates: start: 20080623, end: 20080912
  6. PROSTAL [Concomitant]
     Indication: PROSTATE CANCER
     Route: 048
     Dates: start: 20080623, end: 20080912
  7. SOLON [Concomitant]
     Indication: GASTRITIS
     Dosage: DOSE UNKNOWN
     Route: 048
     Dates: start: 20080623, end: 20080912
  8. HARNAL D [Concomitant]
     Indication: BENIGN PROSTATIC HYPERPLASIA
     Route: 048
     Dates: start: 20080623, end: 20080912
  9. MENDON [Concomitant]
     Indication: INSOMNIA
     Dosage: DOSE UNKNOWN
     Route: 048
     Dates: start: 20080623, end: 20080724

REACTIONS (2)
  - LIVER DISORDER [None]
  - URTICARIA [None]
